FAERS Safety Report 15659264 (Version 10)
Quarter: 2022Q2

REPORT INFORMATION
  Report Type: Other
  Country: CA (occurrence: None)
  Receive Date: 20181127
  Receipt Date: 20220516
  Transmission Date: 20220721
  Serious: No
  Sender: FDA-Public Use
  Company Number: CA-ROCHE-2181086

PATIENT
  Age: 36 Year
  Sex: Female

DRUGS (3)
  1. OCREVUS [Suspect]
     Active Substance: OCRELIZUMAB
     Indication: Relapsing-remitting multiple sclerosis
     Dosage: 300 MG DAY 0 AND DAY 14, 600MG EVERY 6 MONTHS ;ONGOING: YES
     Route: 042
     Dates: start: 20180831
  2. SYNTHROID [Concomitant]
     Active Substance: LEVOTHYROXINE SODIUM
  3. MODAFINIL [Concomitant]
     Active Substance: MODAFINIL
     Dosage: ONGOING TAKEN ONCE TO TWICE A DAY

REACTIONS (8)
  - Influenza like illness [Not Recovered/Not Resolved]
  - Infusion related reaction [Recovered/Resolved]
  - Illness [Recovering/Resolving]
  - Nasopharyngitis [Recovering/Resolving]
  - White blood cell count increased [Unknown]
  - Feeling abnormal [Unknown]
  - SARS-CoV-2 test positive [Unknown]
  - Skin lesion [Unknown]

NARRATIVE: CASE EVENT DATE: 20180831
